FAERS Safety Report 7925953-6 (Version None)
Quarter: 2011Q4

REPORT INFORMATION
  Report Type: 
  Country: None (occurrence: None)
  Receive Date: 20111118
  Receipt Date: 20110415
  Transmission Date: 20120403
  Serious: No
  Sender: FDA-Public Use
  Company Number: US-AMGEN-USASP2011017918

PATIENT
  Age: 33 Year
  Sex: Female

DRUGS (3)
  1. CLOBETASOL [Concomitant]
     Dosage: 0.05 %, UNK
     Dates: start: 20090804
  2. PRILOSEC [Concomitant]
  3. ENBREL [Suspect]
     Indication: PSORIASIS
     Dosage: 50 MG, 2 TIMES/WK
     Dates: start: 20110318

REACTIONS (8)
  - INJECTION SITE WARMTH [None]
  - TENDERNESS [None]
  - OEDEMA PERIPHERAL [None]
  - INJECTION SITE ERYTHEMA [None]
  - JOINT SWELLING [None]
  - ARTHRALGIA [None]
  - INJECTION SITE PRURITUS [None]
  - INJECTION SITE SWELLING [None]
